FAERS Safety Report 7293894-6 (Version None)
Quarter: 2011Q1

REPORT INFORMATION
  Report Type: 
  Country: None (occurrence: None)
  Receive Date: 20110215
  Receipt Date: 20110131
  Transmission Date: 20110831
  Serious: No
  Sender: FDA-Public Use
  Company Number: JP-CTI_01307_2011

PATIENT
  Age: 43 Year
  Sex: Male

DRUGS (2)
  1. VALTREX [Suspect]
     Indication: PRODUCT USED FOR UNKNOWN INDICATION
     Route: 048
     Dates: start: 20110125, end: 20110130
  2. MEIACT MS (CEFDITOREN PIVOXIL) [Suspect]
     Indication: OROPHARYNGEAL PAIN
     Route: 048
     Dates: start: 20110124, end: 20110129

REACTIONS (5)
  - RASH [None]
  - NAUSEA [None]
  - HERPES ZOSTER [None]
  - RENAL FAILURE ACUTE [None]
  - DECREASED APPETITE [None]
